FAERS Safety Report 25572163 (Version 1)
Quarter: 2025Q3

REPORT INFORMATION
  Report Type: Spontaneous
  Country: US (occurrence: US)
  Receive Date: 20250717
  Receipt Date: 20250717
  Transmission Date: 20251021
  Serious: No
  Sender: DAIICHI
  Company Number: US-DAIICHI SANKYO, INC.-DS-2025-153304-USAA

PATIENT
  Age: 71 Year
  Sex: Female

DRUGS (2)
  1. TRASTUZUMAB DERUXTECAN [Suspect]
     Active Substance: TRASTUZUMAB DERUXTECAN
     Indication: Triple negative breast cancer
     Dosage: 374.8 MG, ONCE EVERY 3 WK
     Route: 065
     Dates: start: 202204
  2. TRASTUZUMAB DERUXTECAN [Suspect]
     Active Substance: TRASTUZUMAB DERUXTECAN
     Route: 065
     Dates: start: 202304

REACTIONS (5)
  - Fatigue [Unknown]
  - Dyspnoea [Unknown]
  - Hypoxia [Unknown]
  - Pneumonitis [Unknown]
  - Off label use [Unknown]

NARRATIVE: CASE EVENT DATE: 20220401
